FAERS Safety Report 17546342 (Version 1)
Quarter: 2020Q1

REPORT INFORMATION
  Report Type: Spontaneous
  Country: US (occurrence: US)
  Receive Date: 20200316
  Receipt Date: 20200316
  Transmission Date: 20200409
  Serious: Yes (Hospitalization, Other)
  Sender: FDA-Public Use
  Company Number: US-ASTRAZENECA-2020SE37265

PATIENT
  Age: 917 Month
  Sex: Female
  Weight: 48.5 kg

DRUGS (7)
  1. ALBUTEROL. [Concomitant]
     Active Substance: ALBUTEROL
  2. VITAMINS [Concomitant]
     Active Substance: VITAMINS
  3. DUONEB [Concomitant]
     Active Substance: ALBUTEROL SULFATE\IPRATROPIUM BROMIDE
  4. OXYGEN. [Concomitant]
     Active Substance: OXYGEN
  5. PREDNISONE. [Concomitant]
     Active Substance: PREDNISONE
  6. DALIRESP [Suspect]
     Active Substance: ROFLUMILAST
     Indication: CHRONIC OBSTRUCTIVE PULMONARY DISEASE
     Route: 048
     Dates: start: 2011
  7. TETRACYCLINE [Concomitant]
     Active Substance: TETRACYCLINE

REACTIONS (6)
  - Upper respiratory tract infection [Unknown]
  - Loss of consciousness [Unknown]
  - Headache [Unknown]
  - Atrioventricular block first degree [Unknown]
  - Acne [Unknown]
  - Neck pain [Unknown]

NARRATIVE: CASE EVENT DATE: 201907
